FAERS Safety Report 17118510 (Version 1)
Quarter: 2019Q4

REPORT INFORMATION
  Report Type: Report from Study
  Country: None (occurrence: CA)
  Receive Date: 20191205
  Receipt Date: 20191205
  Transmission Date: 20200122
  Serious: Yes (Other)
  Sender: FDA-Public Use
  Company Number: CA-ABBVIE-19K-028-2955262-00

PATIENT
  Sex: Female

DRUGS (2)
  1. HUMIRA [Suspect]
     Active Substance: ADALIMUMAB
     Route: 058
     Dates: start: 2019, end: 20191101
  2. HUMIRA [Suspect]
     Active Substance: ADALIMUMAB
     Indication: RHEUMATOID ARTHRITIS
     Route: 058
     Dates: start: 20181102, end: 20190920

REACTIONS (12)
  - Blood cholesterol increased [Not Recovered/Not Resolved]
  - Therapeutic product effect decreased [Unknown]
  - Mobility decreased [Not Recovered/Not Resolved]
  - Mass [Unknown]
  - Rash [Not Recovered/Not Resolved]
  - Mass [Not Recovered/Not Resolved]
  - Blood glucose increased [Not Recovered/Not Resolved]
  - Musculoskeletal stiffness [Unknown]
  - Nephropathy [Unknown]
  - Haematochezia [Not Recovered/Not Resolved]
  - Pain [Unknown]
  - Hypertension [Unknown]
